FAERS Safety Report 8217449-1 (Version None)
Quarter: 2012Q1

REPORT INFORMATION
  Report Type: 
  Country: None (occurrence: None)
  Receive Date: 20120306
  Receipt Date: 20111214
  Transmission Date: 20120608
  Serious: Yes (Hospitalization)
  Sender: FDA-Public Use
  Company Number: LIP 11019

PATIENT
  Age: 51 Year
  Sex: Female
  Weight: 77.3 kg

DRUGS (8)
  1. LIVALO [Suspect]
     Dates: start: 20111122, end: 20111213
  2. SYNTHROID [Concomitant]
  3. SEROQUEL [Concomitant]
  4. LIPOFEN [Suspect]
     Dosage: 150MG, DAILY, ORAL
     Route: 048
     Dates: start: 20111122, end: 20111213
  5. EFFEXOR [Concomitant]
  6. BENTYL [Concomitant]
  7. ZOFRAN [Concomitant]
  8. LAMICTAL [Concomitant]

REACTIONS (2)
  - NAUSEA [None]
  - INFLUENZA [None]
